FAERS Safety Report 21831004 (Version 1)
Quarter: 2023Q1

REPORT INFORMATION
  Report Type: Report from Study
  Country: DE (occurrence: DE)
  Receive Date: 20230106
  Receipt Date: 20230106
  Transmission Date: 20230417
  Serious: Yes (Hospitalization, Other)
  Sender: FDA-Public Use
  Company Number: DE-ABBVIE-4202094

PATIENT
  Age: 55 Year
  Sex: Male
  Weight: 99 kg

DRUGS (7)
  1. ADALIMUMAB [Suspect]
     Active Substance: ADALIMUMAB
     Indication: Psoriasis
     Dosage: 40 MILLIGRAM
     Route: 058
     Dates: start: 201305, end: 201812
  2. ADALIMUMAB [Suspect]
     Active Substance: ADALIMUMAB
     Dosage: UNK
     Route: 058
  3. ADALIMUMAB [Concomitant]
     Active Substance: ADALIMUMAB
     Indication: Psoriatic arthropathy
     Dosage: 40 MILLIGRAM, BIWEEKLY
     Route: 058
     Dates: start: 20190125
  4. TRULICITY [Concomitant]
     Active Substance: DULAGLUTIDE
     Indication: Diabetes mellitus
     Dosage: 0.75 DOSAGE FORM
     Route: 058
     Dates: start: 2017
  5. ASPIRIN [Concomitant]
     Active Substance: ASPIRIN
     Indication: Hypertension
     Dosage: 100 MILLIGRAM, BIWEEKLY
     Route: 065
     Dates: start: 2010
  6. METFORMIN [Concomitant]
     Active Substance: METFORMIN HYDROCHLORIDE
     Indication: Diabetes mellitus
     Dosage: 500 MILLIGRAM, QD
     Route: 065
     Dates: start: 2017
  7. LOSARTAN [Concomitant]
     Active Substance: LOSARTAN
     Indication: Hypertension
     Dosage: 1/2 -0-/1/2   STRENGTH- 100 MG
     Route: 065
     Dates: start: 2010

REACTIONS (3)
  - Cancer surgery [Recovered/Resolved with Sequelae]
  - Neck dissection [Unknown]
  - Leukoplakia [Unknown]

NARRATIVE: CASE EVENT DATE: 20200911
